FAERS Safety Report 9713889 (Version 2)
Quarter: 2013Q4

REPORT INFORMATION
  Report Type: Report from Study
  Country: JP (occurrence: JP)
  Receive Date: 20131126
  Receipt Date: 20131205
  Transmission Date: 20140711
  Serious: Yes (Hospitalization)
  Sender: FDA-Public Use
  Company Number: JP-GLAXOSMITHKLINE-B0947529A

PATIENT
  Age: 69 Year
  Sex: Male

DRUGS (2)
  1. SULTANOL [Suspect]
     Dosage: 400MCG PER DAY
     Route: 055
     Dates: start: 20130611, end: 20131115
  2. BLINDED STUDY MEDICATION [Suspect]
     Indication: CHRONIC OBSTRUCTIVE PULMONARY DISEASE
     Route: 055
     Dates: start: 20130709, end: 20131115

REACTIONS (1)
  - Myocardial infarction [Not Recovered/Not Resolved]
